FAERS Safety Report 6234527-7 (Version None)
Quarter: 2009Q2

REPORT INFORMATION
  Report Type: 
  Country: None (occurrence: None)
  Receive Date: 20090618
  Receipt Date: 20090302
  Transmission Date: 20091009
  Serious: No
  Sender: FDA-Public Use
  Company Number: US-BRISTOL-MYERS SQUIBB COMPANY-14541411

PATIENT
  Sex: Male

DRUGS (1)
  1. CARBIDOPA + LEVODOPA [Suspect]
     Indication: PARKINSON'S DISEASE
     Dosage: 1 DF = 10/100 UNITS NOT SPECIFIED(UNS)TILL 15DEC03; PLANNED 25/100 UNS THRICE/DAY ON 16DEC03
     Route: 048

REACTIONS (1)
  - NO THERAPEUTIC RESPONSE [None]
